FAERS Safety Report 7554425-6 (Version None)
Quarter: 2011Q2

REPORT INFORMATION
  Report Type: 
  Country: None (occurrence: None)
  Receive Date: 20110617
  Receipt Date: 20110608
  Transmission Date: 20111010
  Serious: Yes (Hospitalization)
  Sender: FDA-Public Use
  Company Number: A0866191C

PATIENT
  Age: 51 Year
  Sex: Female
  Weight: 85 kg

DRUGS (4)
  1. CARBOPLATIN [Suspect]
     Indication: BREAST CANCER
     Route: 042
     Dates: start: 20100527, end: 20100927
  2. DOCETAXEL [Suspect]
     Indication: BREAST CANCER
     Dosage: 75MGM2 CYCLIC
     Route: 042
     Dates: start: 20100527, end: 20100927
  3. LOVENOX [Concomitant]
     Indication: VENOUS OCCLUSION
  4. LAPATINIB [Suspect]
     Indication: BREAST CANCER
     Dosage: 1500MG PER DAY
     Route: 048
     Dates: start: 20100527, end: 20110606

REACTIONS (2)
  - CELLULITIS [None]
  - PAIN IN EXTREMITY [None]
